FAERS Safety Report 23266256 (Version 1)
Quarter: 2023Q4

REPORT INFORMATION
  Report Type: Spontaneous
  Country: US (occurrence: US)
  Receive Date: 20231206
  Receipt Date: 20231206
  Transmission Date: 20240110
  Serious: Yes (Other)
  Sender: FDA-Public Use
  Company Number: US-STRIDES ARCOLAB LIMITED-2023SP002845

PATIENT
  Age: 69 Year
  Sex: Female

DRUGS (3)
  1. GABAPENTIN [Suspect]
     Active Substance: GABAPENTIN
     Indication: Oral dysaesthesia
     Dosage: 300 MILLIGRAM, TID, (3 TIMES DAILY)
     Route: 065
  2. AMITRIPTYLINE [Suspect]
     Active Substance: AMITRIPTYLINE
     Indication: Oral dysaesthesia
     Dosage: 25 MILLIGRAM, AT BED TIME, (NIGHTLY)
     Route: 065
  3. CLONAZEPAM [Suspect]
     Active Substance: CLONAZEPAM
     Indication: Oral dysaesthesia
     Dosage: UNK, BID (0.1 MG/ML SOLUTION 5 MINUTE SWISH AND SPIT TWICE DAILY)
     Route: 061

REACTIONS (1)
  - Drug ineffective for unapproved indication [Unknown]
